FAERS Safety Report 4637918-0 (Version None)
Quarter: 2005Q2

REPORT INFORMATION
  Report Type: 
  Country: None (occurrence: None)
  Receive Date: 20050418
  Receipt Date: 20050314
  Transmission Date: 20051028
  Serious: Yes (Other)
  Sender: FDA-Public Use
  Company Number: JP-ROCHE-398695

PATIENT
  Age: 74 Year
  Sex: Female

DRUGS (17)
  1. TAMIFLU [Suspect]
     Route: 048
     Dates: start: 20050306, end: 20050306
  2. TAMIFLU [Suspect]
     Route: 048
     Dates: start: 20050307, end: 20050310
  3. TAMIFLU [Suspect]
     Route: 048
     Dates: start: 20050311, end: 20050311
  4. RISPERDAL [Suspect]
     Indication: DEMENTIA ALZHEIMER'S TYPE
     Route: 048
     Dates: start: 20050315
  5. FLOMOX [Suspect]
     Indication: PHARYNGITIS
     Route: 048
     Dates: start: 20050306, end: 20050310
  6. AKINETON [Suspect]
     Indication: DEMENTIA ALZHEIMER'S TYPE
     Route: 048
     Dates: start: 20050315
  7. MARZULENE [Concomitant]
     Indication: DRUG USE FOR UNKNOWN INDICATION
     Route: 048
     Dates: start: 20050306, end: 20050311
  8. CALONAL [Concomitant]
     Indication: DRUG USE FOR UNKNOWN INDICATION
     Route: 048
     Dates: start: 20050306, end: 20050309
  9. ISODINE [Concomitant]
     Indication: DRUG USE FOR UNKNOWN INDICATION
     Dosage: FORM: GARGLE
     Route: 048
  10. SEROQUEL [Concomitant]
     Route: 048
     Dates: start: 20050315
  11. SELBEX [Concomitant]
     Route: 048
     Dates: start: 20050315
  12. ZYPREXA [Concomitant]
     Route: 048
     Dates: start: 20050315
  13. VEGETAMIN B [Concomitant]
     Route: 048
     Dates: start: 20050315
  14. PURSENNID [Concomitant]
     Route: 048
     Dates: start: 20050315
  15. ALESION [Concomitant]
     Route: 048
     Dates: start: 20050307, end: 20050311
  16. COUGHCODE [Concomitant]
     Route: 048
     Dates: start: 20050308, end: 20050310
  17. MUCODYNE [Concomitant]
     Route: 048
     Dates: start: 20050308, end: 20050310

REACTIONS (1)
  - BLOOD CREATINE PHOSPHOKINASE INCREASED [None]
